APPROVED DRUG PRODUCT: MAGNESIUM SULFATE IN PLASTIC CONTAINER
Active Ingredient: MAGNESIUM SULFATE
Strength: 2GM/50ML (40MG/ML)
Dosage Form/Route: INJECTABLE;INJECTION
Application: N020309 | Product #003 | TE Code: AP
Applicant: HOSPIRA INC
Approved: Jan 26, 2007 | RLD: Yes | RS: No | Type: RX